FAERS Safety Report 6908693-1 (Version None)
Quarter: 2010Q3

REPORT INFORMATION
  Report Type: 
  Country: None (occurrence: None)
  Receive Date: 20100805
  Receipt Date: 20100727
  Transmission Date: 20110219
  Serious: Yes (Hospitalization)
  Sender: FDA-Public Use
  Company Number: A0817849A

PATIENT
  Age: 40 Year
  Sex: Female

DRUGS (1)
  1. AVANDIA [Suspect]
     Indication: DIABETES MELLITUS
     Dosage: 2MG PER DAY
     Route: 048
     Dates: start: 20070101, end: 20081201

REACTIONS (5)
  - CEREBRAL ISCHAEMIA [None]
  - CHEST PAIN [None]
  - HALLUCINATION [None]
  - PALPITATIONS [None]
  - TACHYCARDIA [None]
